FAERS Safety Report 8219722-X (Version None)
Quarter: 2012Q1

REPORT INFORMATION
  Report Type: 
  Country: None (occurrence: None)
  Receive Date: 20120319
  Receipt Date: 20120308
  Transmission Date: 20120608
  Serious: Yes (Other)
  Sender: FDA-Public Use
  Company Number: US-ASTRAZENECA-2012SE16464

PATIENT
  Age: 40 Year
  Sex: Female
  Weight: 70.3 kg

DRUGS (3)
  1. SEROQUEL XR [Suspect]
     Indication: AFFECTIVE DISORDER
     Route: 048
  2. SEROQUEL XR [Suspect]
     Indication: BIPOLAR DISORDER
     Route: 048
  3. ALBUTEROL [Concomitant]
     Indication: ASTHMA
     Dosage: AS REQUIRED

REACTIONS (6)
  - ROAD TRAFFIC ACCIDENT [None]
  - MUSCLE STRAIN [None]
  - JOINT DISLOCATION [None]
  - DRUG DOSE OMISSION [None]
  - LIGAMENT INJURY [None]
  - MOOD ALTERED [None]
